FAERS Safety Report 7606411-5 (Version None)
Quarter: 2011Q3

REPORT INFORMATION
  Report Type: 
  Country: None (occurrence: None)
  Receive Date: 20110705
  Receipt Date: 20110628
  Transmission Date: 20111222
  Serious: Yes (Hospitalization, Other)
  Sender: FDA-Public Use
  Company Number: DSU-2011-04838

PATIENT
  Age: 52 Year
  Sex: Male

DRUGS (4)
  1. WELCHOL [Suspect]
     Indication: PRODUCT USED FOR UNKNOWN INDICATION
     Dosage: 3.75 GM (3.75 GM, QD), PER ORAL
     Route: 048
     Dates: start: 20101001, end: 20110601
  2. NITROGLYCERIN [Concomitant]
  3. ASPIRIN [Concomitant]
  4. TOPROL XL (METOPROLOL SUCCINATE) (25 MILLIGRAM) (METOPROLOL SUCCINATE) [Concomitant]

REACTIONS (2)
  - PNEUMONIA [None]
  - BLOOD CREATINE PHOSPHOKINASE INCREASED [None]
